FAERS Safety Report 23572706 (Version 2)
Quarter: 2024Q3

REPORT INFORMATION
  Report Type: Spontaneous
  Country: US (occurrence: US)
  Receive Date: 20240227
  Receipt Date: 20240822
  Transmission Date: 20241016
  Serious: No
  Sender: AVADEL CNS PHARMA
  Company Number: US-AVADEL CNS PHARMACEUTICALS, LLC-2024AVA00018

PATIENT
  Sex: Female

DRUGS (5)
  1. LUMRYZ [Suspect]
     Active Substance: SODIUM OXYBATE
     Indication: Narcolepsy
     Dosage: 7.5 G, ONCE NIGHTLY
     Dates: start: 20230906
  2. LUMRYZ [Suspect]
     Active Substance: SODIUM OXYBATE
     Indication: Cataplexy
     Dosage: 7.5 G, ONCE NIGHTLY
  3. LUMRYZ [Suspect]
     Active Substance: SODIUM OXYBATE
     Indication: Narcolepsy
     Dosage: 6 G
     Dates: end: 2023
  4. LUMRYZ [Suspect]
     Active Substance: SODIUM OXYBATE
     Indication: Cataplexy
  5. UNSPECIFIED INGREDIENT [Suspect]
     Active Substance: UNSPECIFIED INGREDIENT

REACTIONS (5)
  - Ligament sprain [Unknown]
  - Fall [Unknown]
  - Enuresis [Recovering/Resolving]
  - Somnolence [Unknown]
  - Product use issue [Recovered/Resolved]
